FAERS Safety Report 16444445 (Version 1)
Quarter: 2019Q2

REPORT INFORMATION
  Report Type: Report from Study
  Country: CO (occurrence: CO)
  Receive Date: 20190618
  Receipt Date: 20190618
  Transmission Date: 20190711
  Serious: Yes (Other)
  Sender: FDA-Public Use
  Company Number: CO-UCBSA-2019024692

PATIENT
  Age: 42 Year
  Sex: Female
  Weight: 94 kg

DRUGS (6)
  1. LEVOTHYROXINE. [Concomitant]
     Active Substance: LEVOTHYROXINE
     Indication: HYPOTHYROIDISM
     Dosage: 75 MICROGRAM, ONCE DAILY (QD)
     Route: 048
     Dates: start: 20150605
  2. SALBUTAMOL [Concomitant]
     Active Substance: ALBUTEROL
     Indication: ASTHMA
     Dosage: 100 MICROGRAM, AS NEEDED (PRN)
     Route: 048
     Dates: start: 20160605
  3. FOLIC ACID. [Concomitant]
     Active Substance: FOLIC ACID
     Indication: SUPPLEMENTATION THERAPY
     Dosage: 1 MILLIGRAM, ONCE DAILY (QD)
     Route: 048
     Dates: start: 20150605
  4. CERTOLIZUMAB PEGOL [Suspect]
     Active Substance: CERTOLIZUMAB PEGOL
     Indication: RHEUMATOID ARTHRITIS
     Dosage: 400 MILLIGRAM, EV 4 WEEKS
     Route: 058
     Dates: start: 20190508, end: 20190508
  5. METHOTREXATE. [Concomitant]
     Active Substance: METHOTREXATE
     Indication: RHEUMATOID ARTHRITIS
     Dosage: 20 MILLIGRAM, WEEKLY (QW)
     Route: 048
     Dates: start: 20150605
  6. SEROHALE [Concomitant]
     Indication: ASTHMA
     Dosage: 250 MICROGRAM, AS NEEDED (PRN)
     Route: 048
     Dates: start: 20180605

REACTIONS (2)
  - Herpes zoster [Recovering/Resolving]
  - Ear infection [Recovering/Resolving]

NARRATIVE: CASE EVENT DATE: 20190520
